FAERS Safety Report 20561969 (Version 1)
Quarter: 2022Q1

REPORT INFORMATION
  Report Type: Report from Study
  Country: GB (occurrence: GB)
  Receive Date: 20220307
  Receipt Date: 20220307
  Transmission Date: 20220423
  Serious: No
  Sender: FDA-Public Use
  Company Number: GB-GLAXOSMITHKLINE-GB2022GSK033216

PATIENT
  Sex: Female

DRUGS (1)
  1. BELANTAMAB MAFODOTIN [Suspect]
     Active Substance: BELANTAMAB MAFODOTIN
     Indication: Plasma cell myeloma
     Dosage: UNK
     Route: 042
     Dates: start: 20210804, end: 20211123

REACTIONS (1)
  - Visual acuity reduced [Recovering/Resolving]
